FAERS Safety Report 4454431-4 (Version None)
Quarter: 2004Q3

REPORT INFORMATION
  Report Type: 
  Country: None (occurrence: None)
  Receive Date: 20040917
  Receipt Date: 20040917
  Transmission Date: 20050211
  Serious: Yes (Other)
  Sender: FDA-Public Use
  Company Number: None

PATIENT
  Sex: Female
  Weight: 54.4316 kg

DRUGS (4)
  1. VANCOMYCIN [Suspect]
     Indication: OSTEOMYELITIS
     Dosage: 1 GM IV Q 12 HRS
     Route: 042
     Dates: start: 20040819, end: 20040904
  2. COMPAZINE [Concomitant]
  3. DARVOCET-N 100 [Concomitant]
  4. COLACE [Concomitant]

REACTIONS (1)
  - EAR PAIN [None]
